FAERS Safety Report 9896058 (Version 1)
Quarter: 2014Q1

REPORT INFORMATION
  Report Type: Spontaneous
  Country: US (occurrence: US)
  Receive Date: 20140213
  Receipt Date: 20140213
  Transmission Date: 20141002
  Serious: No
  Sender: FDA-Public Use
  Company Number: US-BRISTOL-MYERS SQUIBB COMPANY-19025055

PATIENT
  Age: 51 Year
  Sex: Female

DRUGS (7)
  1. ORENCIA [Suspect]
     Indication: RHEUMATOID ARTHRITIS
     Route: 042
     Dates: start: 20121105, end: 20130315
  2. PREDNISONE [Concomitant]
  3. METHOTREXATE [Concomitant]
  4. ATENOLOL [Concomitant]
  5. FOLIC ACID [Concomitant]
  6. HYDROCHLOROTHIAZIDE [Concomitant]
  7. SIMVASTATIN [Concomitant]

REACTIONS (2)
  - Rheumatoid arthritis [Unknown]
  - Osteoarthritis [Unknown]
